FAERS Safety Report 6899152-3 (Version None)
Quarter: 2010Q3

REPORT INFORMATION
  Report Type: 
  Country: None (occurrence: None)
  Receive Date: 20100802
  Receipt Date: 20080114
  Transmission Date: 20110219
  Serious: Yes (Other)
  Sender: FDA-Public Use
  Company Number: US-PFIZER INC-2008004491

PATIENT
  Age: 76 Year
  Sex: Female
  Weight: 77.272 kg

DRUGS (3)
  1. LYRICA [Suspect]
     Indication: UNEVALUABLE EVENT
     Dosage: 5 EVERY 1 DAYS
     Dates: start: 20080102
  2. LYRICA [Suspect]
     Indication: PAIN
  3. ANTIHYPERTENSIVES [Concomitant]
     Indication: HYPERTENSION

REACTIONS (10)
  - ACTIVITIES OF DAILY LIVING IMPAIRED [None]
  - BALANCE DISORDER [None]
  - CONSTIPATION [None]
  - GAIT DISTURBANCE [None]
  - INSOMNIA [None]
  - OEDEMA PERIPHERAL [None]
  - THINKING ABNORMAL [None]
  - VISION BLURRED [None]
  - VISUAL ACUITY REDUCED [None]
  - WEIGHT INCREASED [None]
